FAERS Safety Report 5772466-6 (Version None)
Quarter: 2008Q2

REPORT INFORMATION
  Report Type: 
  Country: None (occurrence: None)
  Receive Date: 20080613
  Receipt Date: 20080605
  Transmission Date: 20081010
  Serious: Yes (Other)
  Sender: FDA-Public Use
  Company Number: GR-ROCHE-569147

PATIENT
  Age: 62 Year
  Sex: Male

DRUGS (2)
  1. BONIVA [Suspect]
     Indication: OSTEOPOROSIS
     Dosage: STOP DATE: JUNE 2008
     Route: 048
     Dates: start: 20060101
  2. CALCIORAL [Concomitant]

REACTIONS (1)
  - LEUKOPENIA [None]
